FAERS Safety Report 7587705-9 (Version None)
Quarter: 2011Q3

REPORT INFORMATION
  Report Type: 
  Country: None (occurrence: None)
  Receive Date: 20110704
  Receipt Date: 20110621
  Transmission Date: 20111222
  Serious: Yes (Other)
  Sender: FDA-Public Use
  Company Number: US-ELI_LILLY_AND_COMPANY-US201104006978

PATIENT
  Sex: Female

DRUGS (8)
  1. MORPHINE [Concomitant]
     Indication: BREAKTHROUGH PAIN
     Dosage: 15 DF, UNKNOWN
  2. CYMBALTA [Suspect]
     Dosage: 30 MG, QD
     Dates: start: 20110421
  3. ANTI-ASTHMATICS [Concomitant]
     Indication: ASTHMA
  4. SINGULAIR [Concomitant]
  5. FENTANYL [Concomitant]
     Dosage: 25 DF, UNKNOWN
  6. SYNTHROID [Concomitant]
  7. CYMBALTA [Suspect]
     Indication: DEPRESSION
     Dosage: 30 MG, QD
     Dates: start: 20101201, end: 20101201
  8. LORATADINE [Concomitant]

REACTIONS (9)
  - BLADDER CANCER [None]
  - RETCHING [None]
  - VOMITING [None]
  - HYPERHIDROSIS [None]
  - DRY MOUTH [None]
  - NAUSEA [None]
  - HEADACHE [None]
  - TREMOR [None]
  - DIZZINESS [None]
